FAERS Safety Report 8978258 (Version 2)
Quarter: 2013Q1

REPORT INFORMATION
  Report Type: Spontaneous
  Country: GB (occurrence: GB)
  Receive Date: 20121220
  Receipt Date: 20130111
  Transmission Date: 20140127
  Serious: Yes (Other)
  Sender: FDA-Public Use
  Company Number: GB-PFIZER INC-2011279726

PATIENT
  Age: 44 Year
  Sex: Female
  Weight: 95.24 kg

DRUGS (2)
  1. CHAMPIX [Suspect]
     Indication: SMOKING CESSATION THERAPY
     Dosage: UNK
     Dates: start: 201103
  2. CO-CODAMOL [Concomitant]
     Indication: PAIN
     Dosage: 30/500, 4X/DAY OR AS NEEDED
     Route: 048
     Dates: start: 20090421

REACTIONS (7)
  - Suicidal ideation [Unknown]
  - Depression [Not Recovered/Not Resolved]
  - Emotional disorder [Unknown]
  - Weight increased [Not Recovered/Not Resolved]
  - Abdominal pain [Unknown]
  - Amenorrhoea [Unknown]
  - Malaise [Unknown]
